FAERS Safety Report 7563973-4 (Version None)
Quarter: 2011Q2

REPORT INFORMATION
  Report Type: 
  Country: None (occurrence: None)
  Receive Date: 20110622
  Receipt Date: 20110620
  Transmission Date: 20111010
  Serious: Yes (Life-Threatening)
  Sender: FDA-Public Use
  Company Number: IT-PFIZER INC-2011134898

PATIENT
  Age: 60 Year
  Sex: Female

DRUGS (8)
  1. DOXYCYCLINE HYCLATE [Suspect]
     Indication: RICKETTSIOSIS
  2. IRBESARTAN [Concomitant]
     Dosage: 300 MG, UNK
     Route: 048
  3. BARNIDIPINE HYDROCHLORIDE [Concomitant]
     Dosage: 5 MG, UNK
     Route: 048
  4. DOXYCYCLINE HYCLATE [Suspect]
     Indication: PYREXIA
     Dosage: 100 MG, 1X/DAY
     Route: 048
     Dates: start: 20110608, end: 20110610
  5. ALLOPURINOL [Suspect]
     Indication: HYPERURICAEMIA
     Dosage: 150 MG, 1X/DAY
     Route: 048
     Dates: start: 20110528, end: 20110608
  6. ASPIRIN [Concomitant]
     Dosage: 100 MG, UNK
     Route: 048
  7. ATORVASTATIN CALCIUM [Concomitant]
  8. LASIX [Concomitant]
     Dosage: 25 MG, UNK

REACTIONS (1)
  - TOXIC EPIDERMAL NECROLYSIS [None]
